FAERS Safety Report 25940077 (Version 1)
Quarter: 2025Q4

REPORT INFORMATION
  Report Type: Spontaneous
  Country: US (occurrence: US)
  Receive Date: 20251020
  Receipt Date: 20251020
  Transmission Date: 20260118
  Serious: No
  Sender: LEO PHARM
  Company Number: US-LEO Pharma-383557

PATIENT
  Age: 56 Year
  Sex: Male

DRUGS (1)
  1. ADBRY [Suspect]
     Active Substance: TRALOKINUMAB-LDRM
     Indication: Dermatitis atopic
     Dosage: TREATMENT ONGOING??2-300MG PENS UNDER THE SKIN ON DAY 1 (04/25) THEN 1-300MG PEN EVERY 14 DAYS (UNKN
     Route: 058
     Dates: start: 202504

REACTIONS (3)
  - Eye disorder [Unknown]
  - Hyperaesthesia eye [Unknown]
  - Eye pruritus [Unknown]
